FAERS Safety Report 13950669 (Version 1)
Quarter: 2017Q3

REPORT INFORMATION
  Report Type: Report from Study
  Country: US (occurrence: US)
  Receive Date: 20170908
  Receipt Date: 20170908
  Transmission Date: 20171128
  Serious: Yes (Hospitalization, Other)
  Sender: FDA-Public Use
  Company Number: US-INDIVIOR LIMITED-INDV-104371-2017

PATIENT
  Age: 34 Year
  Sex: Female

DRUGS (3)
  1. BUPRENORPHINE. [Suspect]
     Active Substance: BUPRENORPHINE
     Indication: PRODUCT USED FOR UNKNOWN INDICATION
     Dosage: 4MG, UNK
     Route: 060
  2. BUPRENORPHINE. [Suspect]
     Active Substance: BUPRENORPHINE
     Dosage: ADDITIONAL 2MG 4 HOURS LATER
     Route: 060
  3. BUPRENORPHINE. [Suspect]
     Active Substance: BUPRENORPHINE
     Dosage: ADDITIONAL 2MG 2 HOURS LATER GIVING 4 MG
     Route: 060

REACTIONS (2)
  - Drug withdrawal syndrome [Unknown]
  - Stress cardiomyopathy [Unknown]
